FAERS Safety Report 8350050 (Version 3)
Quarter: 2013Q2

REPORT INFORMATION
  Report Type: Spontaneous
  Country: BR (occurrence: BR)
  Receive Date: 20120124
  Receipt Date: 20130403
  Transmission Date: 20140414
  Serious: Yes (Other)
  Sender: FDA-Public Use
  Company Number: BR-AMGEN-BRASP2012003490

PATIENT
  Sex: Male
  Weight: 78 kg

DRUGS (4)
  1. ENBREL [Suspect]
     Indication: PSORIATIC ARTHROPATHY
     Dosage: 25MG, TWICE A WEEK
     Route: 058
     Dates: start: 200911
  2. METHOTREXATE SODIUM [Suspect]
     Dosage: UNK
  3. NIMESULIDE [Concomitant]
     Dosage: UNK
  4. DEFLAZACORT [Concomitant]
     Dosage: UNK

REACTIONS (9)
  - Pain [Recovering/Resolving]
  - Cardiac disorder [Unknown]
  - Nail disorder [Unknown]
  - Muscle rigidity [Unknown]
  - Malaise [Unknown]
  - Gait disturbance [Unknown]
  - Psoriasis [Recovering/Resolving]
  - Drug ineffective [Unknown]
  - Psoriatic arthropathy [Recovering/Resolving]
